FAERS Safety Report 14913236 (Version 1)
Quarter: 2018Q2

REPORT INFORMATION
  Report Type: Spontaneous
  Country: US (occurrence: US)
  Receive Date: 20180518
  Receipt Date: 20180518
  Transmission Date: 20180711
  Serious: Yes (Other)
  Sender: FDA-Public Use
  Company Number: US-FERRINGPH-2018FE02326

PATIENT

DRUGS (4)
  1. TESTOSTERONE. [Suspect]
     Active Substance: TESTOSTERONE
     Indication: DRUG ABUSE
     Dosage: UNKNOWN
     Route: 065
  2. STANOZOLOL [Suspect]
     Active Substance: STANOZOLOL
     Indication: DRUG ABUSE
     Route: 065
  3. OXYMETHOLONE [Suspect]
     Active Substance: OXYMETHOLONE
     Indication: DRUG ABUSE
     Route: 065
  4. SOMATROPIN. [Suspect]
     Active Substance: SOMATROPIN
     Indication: DRUG ABUSE
     Dosage: UNKNOWN
     Route: 065

REACTIONS (2)
  - Aortic aneurysm [Unknown]
  - Drug abuse [Unknown]
